FAERS Safety Report 8055769-4 (Version None)
Quarter: 2011Q4

REPORT INFORMATION
  Report Type: 
  Country: None (occurrence: None)
  Receive Date: 20111219
  Receipt Date: 20110901
  Transmission Date: 20120403
  Serious: Yes (Death)
  Sender: FDA-Public Use
  Company Number: 846632

PATIENT
  Age: 14 Year
  Sex: Female

DRUGS (1)
  1. GABLOFEN [Suspect]
     Indication: MOVEMENT DISORDER

REACTIONS (1)
  - DEATH [None]
